FAERS Safety Report 4557053-X (Version None)
Quarter: 2005Q1

REPORT INFORMATION
  Report Type: 
  Country: None (occurrence: None)
  Receive Date: 20050118
  Receipt Date: 20050111
  Transmission Date: 20050727
  Serious: Yes (Hospitalization)
  Sender: FDA-Public Use
  Company Number: CERZ-10760

PATIENT
  Age: 27 Month
  Sex: Female
  Weight: 9.5 kg

DRUGS (1)
  1. CEREZYME [Suspect]
     Indication: GAUCHER'S DISEASE
     Dosage: 600 UNITS Q2WKS IV
     Route: 042
     Dates: start: 20030729

REACTIONS (1)
  - OSTEOMYELITIS [None]
